FAERS Safety Report 4322524-8 (Version None)
Quarter: 2004Q1

REPORT INFORMATION
  Report Type: 
  Country: None (occurrence: None)
  Receive Date: 20040324
  Receipt Date: 20040316
  Transmission Date: 20041129
  Serious: Yes (Other)
  Sender: FDA-Public Use
  Company Number: 200410946JP

PATIENT
  Sex: 0

DRUGS (2)
  1. LASIX [Suspect]
  2. ZYLORIC [Concomitant]
     Route: 048

REACTIONS (1)
  - PEMPHIGOID [None]
